FAERS Safety Report 9536178 (Version 1)
Quarter: 2013Q2

REPORT INFORMATION
  Report Type: Spontaneous
  Country: US (occurrence: None)
  Receive Date: 20130424
  Receipt Date: 20130424
  Transmission Date: 20140414
  Serious: Yes (Hospitalization)
  Sender: FDA-Public Use
  Company Number: VAL_01464_2013

PATIENT
  Age: 85 Year
  Sex: Female

DRUGS (6)
  1. METOPROLOL [Suspect]
     Dosage: (UNK MG, UNK)
     Dates: end: 20120309
  2. BYSTOLIC [Suspect]
     Indication: HYPERTENSION
     Dosage: 5 MG. 5 MG , QD ORAL)
     Dates: start: 20120309
  3. NITROGLYCERIN [Concomitant]
  4. ISOSORBIDE [Concomitant]
  5. SIMVASTATIN [Concomitant]
  6. ASPIRIN [Concomitant]

REACTIONS (6)
  - Angina pectoris [None]
  - Nausea [None]
  - Vomiting [None]
  - Back pain [None]
  - Malaise [None]
  - Blood triglycerides increased [None]
